FAERS Safety Report 17072487 (Version 1)
Quarter: 2019Q4

REPORT INFORMATION
  Report Type: Spontaneous
  Country: US (occurrence: US)
  Receive Date: 20191124
  Receipt Date: 20191124
  Transmission Date: 20200122
  Serious: Yes (Other)
  Sender: FDA-Public Use
  Company Number: None

PATIENT
  Age: 46 Year
  Sex: Female
  Weight: 117 kg

DRUGS (9)
  1. BUPROPRION [Suspect]
     Active Substance: BUPROPION
     Indication: DEPRESSION
     Route: 048
     Dates: start: 20191122, end: 20191124
  2. POT CL MICRO ER [Concomitant]
  3. HYDROCHLOROTHIAZIDE. [Concomitant]
     Active Substance: HYDROCHLOROTHIAZIDE
  4. LATANOPROST. [Concomitant]
     Active Substance: LATANOPROST
  5. ONE-A-DAY WOMEN^S MULTIVITAMIN [Concomitant]
  6. BUPROPRION [Suspect]
     Active Substance: BUPROPION
     Indication: ANXIETY
     Route: 048
     Dates: start: 20191122, end: 20191124
  7. DIPHENHYDRAMINE OR ALLEGRA-D [Concomitant]
  8. BUPROPRION XL 300MG TAB ANC [Suspect]
     Active Substance: BUPROPION HYDROCHLORIDE
     Indication: DEPRESSION
     Route: 048
     Dates: start: 20191105, end: 20191124
  9. BUPROPRION XL 300MG TAB ANC [Suspect]
     Active Substance: BUPROPION HYDROCHLORIDE
     Indication: ANXIETY
     Route: 048
     Dates: start: 20191105, end: 20191124

REACTIONS (3)
  - Depression [None]
  - Feeling abnormal [None]
  - Anxiety [None]

NARRATIVE: CASE EVENT DATE: 20191105
